FAERS Safety Report 8050042-2 (Version None)
Quarter: 2012Q1

REPORT INFORMATION
  Report Type: 
  Country: None (occurrence: None)
  Receive Date: 20120117
  Receipt Date: 20120110
  Transmission Date: 20120608
  Serious: Yes (Hospitalization)
  Sender: FDA-Public Use
  Company Number: PT-US-EMD SERONO, INC.-7072634

PATIENT
  Sex: Female
  Weight: 60 kg

DRUGS (3)
  1. CLADRIBINE [Suspect]
     Indication: MULTIPLE SCLEROSIS
     Route: 048
     Dates: start: 20090211, end: 20090215
  2. CLADRIBINE [Suspect]
     Route: 048
     Dates: start: 20090311, end: 20090315
  3. REBIF [Suspect]
     Indication: MULTIPLE SCLEROSIS
     Route: 058
     Dates: start: 20100305, end: 20100811

REACTIONS (1)
  - THYROIDITIS [None]
